FAERS Safety Report 8880183 (Version 2)
Quarter: 2012Q4

REPORT INFORMATION
  Report Type: 
  Country: LB (occurrence: LB)
  Receive Date: 20121101
  Receipt Date: 20121107
  Transmission Date: 20130627
  Serious: Yes (Hospitalization)
  Sender: FDA-Public Use
  Company Number: PHHY2012LB098283

PATIENT
  Age: 65 Year
  Sex: Female
  Weight: 65 kg

DRUGS (4)
  1. ACLASTA [Suspect]
     Indication: OSTEOPOROSIS
     Dosage: 5 mg, yearly
     Route: 042
     Dates: start: 20121024
  2. CRESTOR [Concomitant]
     Indication: HYPERLIPIDAEMIA
     Dosage: 10 mg, QD
     Route: 048
     Dates: start: 2010
  3. CI-CAL D [Concomitant]
     Indication: OSTEOPOROSIS
     Dosage: 600 mg, BID
     Route: 048
     Dates: start: 2010
  4. VITAMIN D [Concomitant]
     Indication: OSTEOPOROSIS
     Dosage: 10000 IU, once weekly
     Route: 048
     Dates: start: 2010

REACTIONS (7)
  - Hyponatraemia [Recovered/Resolved]
  - Asthenia [Recovered/Resolved]
  - Muscle spasms [Recovered/Resolved]
  - Loss of consciousness [Recovered/Resolved]
  - Vomiting [Recovered/Resolved]
  - Pyrexia [Recovered/Resolved]
  - Urine sodium decreased [Recovered/Resolved]
